FAERS Safety Report 23012858 (Version 3)
Quarter: 2023Q4

REPORT INFORMATION
  Report Type: Spontaneous
  Country: US (occurrence: US)
  Receive Date: 20230930
  Receipt Date: 20231012
  Transmission Date: 20240110
  Serious: Yes (Hospitalization, Other)
  Sender: FDA-Public Use
  Company Number: US-AMGEN-USASP2023170706

PATIENT
  Age: 80 Year
  Sex: Female

DRUGS (4)
  1. REPATHA [Suspect]
     Active Substance: EVOLOCUMAB
     Indication: Blood cholesterol abnormal
     Dosage: 140 MILLIGRAM, Q2WK
     Route: 065
     Dates: start: 20170914
  2. REPATHA [Suspect]
     Active Substance: EVOLOCUMAB
     Dosage: 140 MILLIGRAM, Q2WK
     Route: 065
  3. REPATHA [Suspect]
     Active Substance: EVOLOCUMAB
     Dosage: UNK UNK, Q2WK
     Route: 065
  4. REPATHA [Suspect]
     Active Substance: EVOLOCUMAB
     Dosage: UNK UNK, Q2WK
     Route: 065

REACTIONS (7)
  - Small intestinal obstruction [Unknown]
  - Urinary tract infection [Not Recovered/Not Resolved]
  - Influenza [Unknown]
  - Cholecystectomy [Unknown]
  - Device difficult to use [Unknown]
  - Drug dose omission by device [Unknown]
  - Scar [Unknown]

NARRATIVE: CASE EVENT DATE: 20230101
